FAERS Safety Report 9393389 (Version 3)
Quarter: 2014Q1

REPORT INFORMATION
  Report Type: Report from Study
  Country: KR (occurrence: KR)
  Receive Date: 20130710
  Receipt Date: 20140117
  Transmission Date: 20141002
  Serious: Yes (Hospitalization)
  Sender: FDA-Public Use
  Company Number: PHHY2013KR058250

PATIENT
  Age: 50 Year
  Sex: Female
  Weight: 62.7 kg

DRUGS (13)
  1. AMN107 [Suspect]
     Indication: CHRONIC MYELOID LEUKAEMIA
     Dosage: 600 MG, DAILY
     Route: 048
     Dates: start: 20120919, end: 20130605
  2. KYNEX 2 [Concomitant]
     Indication: HEADACHE
     Dosage: 2 DRP
     Route: 047
     Dates: start: 20130506
  3. KYNEX 2 [Concomitant]
     Indication: VISUAL IMPAIRMENT
  4. TORAMINE [Concomitant]
     Indication: HEADACHE
     Dosage: 120 MG
     Dates: start: 20130515
  5. TORAMINE [Concomitant]
     Indication: DIZZINESS
  6. ACETAMINOPHEN W/CODEINE [Concomitant]
     Indication: PAIN
     Dosage: 3 DF, UNK
     Route: 048
     Dates: start: 20121101, end: 20121110
  7. DIOSMIN W/HESPERIDIN [Concomitant]
     Indication: HAEMORRHOIDS
     Dosage: 300 MG, UNK
     Route: 048
     Dates: start: 20121101, end: 20121107
  8. KETOROLAC TROMETHAMINE [Concomitant]
     Dosage: 30 MG, UNK
     Route: 048
     Dates: start: 20121111, end: 20121115
  9. MACROGOL 4000 [Concomitant]
     Indication: CONSTIPATION
     Dosage: 20 G, UNK
     Dates: start: 20121101, end: 20121114
  10. RANITIDINE [Concomitant]
     Indication: GASTRITIS
     Dosage: 150 MG, UNK
     Route: 048
     Dates: start: 20120110, end: 20120308
  11. SULGAN 99 [Concomitant]
     Indication: ANAL FISSURE
     Dates: start: 20121101, end: 20121101
  12. TEPRENONE [Concomitant]
     Indication: GASTRITIS
     Dosage: 3 DF, UNK
     Route: 048
     Dates: start: 20121204, end: 20121224
  13. TRAMADOL HCL [Concomitant]
     Dosage: 150 MG, UNK
     Dates: start: 20120503, end: 20120509

REACTIONS (5)
  - Cerebral artery occlusion [Recovered/Resolved]
  - Cerebral artery stenosis [Recovered/Resolved]
  - Vasculitis [Recovered/Resolved]
  - Moyamoya disease [Recovered/Resolved]
  - Subclavian artery occlusion [Recovered/Resolved]
